FAERS Safety Report 24577058 (Version 3)
Quarter: 2025Q1

REPORT INFORMATION
  Report Type: Spontaneous
  Country: PT (occurrence: PT)
  Receive Date: 20241104
  Receipt Date: 20250310
  Transmission Date: 20250409
  Serious: Yes (Hospitalization, Other)
  Sender: BAXTER
  Company Number: None

PATIENT
  Age: 1 Year
  Sex: Male
  Weight: 11 kg

DRUGS (5)
  1. PROPOFOL [Suspect]
     Active Substance: PROPOFOL
     Indication: Anaesthesia
     Route: 042
     Dates: start: 20240921
  2. ACETAMINOPHEN [Concomitant]
     Active Substance: ACETAMINOPHEN
     Route: 042
  3. Fentanilo Labesfal [Concomitant]
     Route: 042
  4. Atropina Labesfal [Concomitant]
     Route: 042
  5. KETAMINE [Concomitant]
     Active Substance: KETAMINE
     Route: 065

REACTIONS (3)
  - Blister [Recovered/Resolved with Sequelae]
  - Wound necrosis [Recovered/Resolved with Sequelae]
  - Seroma [Recovered/Resolved with Sequelae]

NARRATIVE: CASE EVENT DATE: 20240921
